FAERS Safety Report 5657001-5 (Version None)
Quarter: 2008Q1

REPORT INFORMATION
  Report Type: 
  Country: None (occurrence: None)
  Receive Date: 20080310
  Receipt Date: 20080305
  Transmission Date: 20080703
  Serious: Yes (Other)
  Sender: FDA-Public Use
  Company Number: D0056243A

PATIENT
  Age: 72 Year
  Sex: Female

DRUGS (5)
  1. VIANI [Suspect]
     Indication: ASTHMA
     Dosage: 300MCG TWICE PER DAY
     Route: 055
     Dates: start: 20051101
  2. NEBILET [Concomitant]
     Route: 065
  3. ENAHEXAL [Concomitant]
     Route: 065
  4. ASPIRIN [Concomitant]
     Route: 065
  5. ALLOPURINOL [Concomitant]
     Route: 065

REACTIONS (2)
  - VENOUS THROMBOSIS [None]
  - VISUAL ACUITY REDUCED [None]
